FAERS Safety Report 23277865 (Version 1)
Quarter: 2023Q4

REPORT INFORMATION
  Report Type: Report from Study
  Country: IN (occurrence: IN)
  Receive Date: 20231208
  Receipt Date: 20231208
  Transmission Date: 20240110
  Serious: Yes (Other)
  Sender: FDA-Public Use
  Company Number: IN-002147023-NVSC2023IN043811

PATIENT
  Age: 46 Year
  Sex: Female

DRUGS (1)
  1. RIBOCICLIB [Suspect]
     Active Substance: RIBOCICLIB
     Indication: Breast cancer metastatic
     Dosage: 600 MG, OTHER (600 MG OD FOR D1-D21 AND 7 DAYS OFF FOR 3 MONTH)
     Route: 048
     Dates: start: 20220419

REACTIONS (3)
  - Full blood count abnormal [Unknown]
  - Asthenia [Recovered/Resolved]
  - Pyrexia [Unknown]

NARRATIVE: CASE EVENT DATE: 20230802
